FAERS Safety Report 8249241-6 (Version None)
Quarter: 2012Q1

REPORT INFORMATION
  Report Type: 
  Country: None (occurrence: None)
  Receive Date: 20120321
  Receipt Date: 20120313
  Transmission Date: 20120608
  Serious: Yes (Life-Threatening)
  Sender: FDA-Public Use
  Company Number: 2012031648

PATIENT
  Age: 40 Year
  Sex: Male

DRUGS (5)
  1. FUROSEMIDE [Concomitant]
  2. LACTULOSE [Concomitant]
  3. SPIRONOLACTONE [Concomitant]
  4. ALBURX [Suspect]
     Dosage: (50 ML/ HOUR FOR 6 HOURS INTRAVENOUS
     Route: 042
  5. TOLVAPTAN (TOLVAPTAN) [Suspect]
     Indication: HYPONATRAEMIA
     Dosage: (30 MG QD ORAL)
     Route: 048

REACTIONS (1)
  - POLYURIA [None]
